FAERS Safety Report 21221677 (Version 1)
Quarter: 2022Q3

REPORT INFORMATION
  Report Type: Report from Study
  Country: US (occurrence: US)
  Receive Date: 20220817
  Receipt Date: 20220817
  Transmission Date: 20221027
  Serious: Yes (Hospitalization, Other)
  Sender: FDA-Public Use
  Company Number: US-GILEAD-2022-0593704

PATIENT
  Age: 20 Year
  Sex: Female

DRUGS (4)
  1. AZTREONAM LYSINE [Suspect]
     Active Substance: AZTREONAM LYSINE
     Indication: Cystic fibrosis
     Dosage: 75 MG, TID, FOR 28 DAYS ON AND THEN 28 DAYS OFF
     Route: 055
     Dates: start: 20220505
  2. TOBRAMYCIN [Concomitant]
     Active Substance: TOBRAMYCIN
  3. TRIKAFTA [Concomitant]
     Active Substance: ELEXACAFTOR\IVACAFTOR\TEZACAFTOR
  4. PULMOZYME [Concomitant]
     Active Substance: DORNASE ALFA

REACTIONS (4)
  - Cystic fibrosis respiratory infection suppression [Unknown]
  - Infection [Unknown]
  - Dyspnoea [Unknown]
  - Product dose omission issue [Unknown]
